FAERS Safety Report 13862854 (Version 1)
Quarter: 2017Q3

REPORT INFORMATION
  Report Type: Spontaneous
  Country: US (occurrence: US)
  Receive Date: 20170814
  Receipt Date: 20170814
  Transmission Date: 20171127
  Serious: No
  Sender: FDA-Public Use
  Company Number: US-TEVA-788308ACC

PATIENT
  Age: 20 Year
  Sex: Male

DRUGS (1)
  1. PALIPTAB-A [Suspect]
     Active Substance: PALIPERIDONE
     Indication: BIPOLAR DISORDER
     Dates: start: 20170708

REACTIONS (4)
  - Drug ineffective [Unknown]
  - Product solubility abnormal [Unknown]
  - Psychomotor hyperactivity [Not Recovered/Not Resolved]
  - Somnambulism [Not Recovered/Not Resolved]

NARRATIVE: CASE EVENT DATE: 201707
